FAERS Safety Report 15343149 (Version 1)
Quarter: 2018Q3

REPORT INFORMATION
  Report Type: Spontaneous
  Country: CN (occurrence: CN)
  Receive Date: 20180903
  Receipt Date: 20180903
  Transmission Date: 20181010
  Serious: Yes (Hospitalization)
  Sender: FDA-Public Use
  Company Number: CN-ROCHE-2162525

PATIENT
  Sex: Male
  Weight: 75 kg

DRUGS (13)
  1. XELODA [Suspect]
     Active Substance: CAPECITABINE
     Dosage: 42000MG FOR 1 CYCLE, IN A TOTAL OF 6 CYCLE
     Route: 048
  2. XELODA [Suspect]
     Active Substance: CAPECITABINE
     Indication: COLON CANCER
     Dosage: FROM DAY 1 TO DAY 14
     Route: 048
     Dates: start: 20170508
  3. OXALIPLATIN. [Suspect]
     Active Substance: OXALIPLATIN
     Dosage: 0.2G ON DAY 1
     Route: 065
     Dates: start: 20170526
  4. AVASTIN [Suspect]
     Active Substance: BEVACIZUMAB
     Indication: COLON CANCER
     Route: 065
     Dates: start: 20180616, end: 20180616
  5. XELODA [Suspect]
     Active Substance: CAPECITABINE
     Dosage: FROM DAY 1 TO DAY 14
     Route: 048
     Dates: start: 20170617
  6. IRINOTECAN HYDROCHLORIDE. [Suspect]
     Active Substance: IRINOTECAN HYDROCHLORIDE
     Indication: COLON CANCER
     Dosage: A TOTAL OF 200MG
     Route: 065
     Dates: start: 20170617
  7. IRINOTECAN HYDROCHLORIDE. [Suspect]
     Active Substance: IRINOTECAN HYDROCHLORIDE
     Dosage: 400MG FOR 1 CYCLE, IN A TOTAL OF 6 CYCLE
     Route: 065
  8. IRINOTECAN HYDROCHLORIDE. [Suspect]
     Active Substance: IRINOTECAN HYDROCHLORIDE
     Route: 041
     Dates: start: 20180514, end: 20180514
  9. IRINOTECAN HYDROCHLORIDE. [Suspect]
     Active Substance: IRINOTECAN HYDROCHLORIDE
     Route: 041
     Dates: start: 20180616, end: 20180616
  10. OXALIPLATIN. [Suspect]
     Active Substance: OXALIPLATIN
     Indication: COLON CANCER
     Dosage: 0.2G ON DAY 1
     Route: 065
     Dates: start: 20170508
  11. XELODA [Suspect]
     Active Substance: CAPECITABINE
     Route: 048
     Dates: start: 20180514, end: 20180527
  12. XELODA [Suspect]
     Active Substance: CAPECITABINE
     Route: 048
     Dates: start: 20180616, end: 20180622
  13. XELODA [Suspect]
     Active Substance: CAPECITABINE
     Dosage: FROM DAY 1 TO DAY 14
     Route: 048
     Dates: start: 20170526

REACTIONS (2)
  - Hypersensitivity [Unknown]
  - Bone marrow failure [Recovering/Resolving]
